FAERS Safety Report 24169311 (Version 1)
Quarter: 2024Q3

REPORT INFORMATION
  Report Type: Report from Study
  Country: US (occurrence: None)
  Receive Date: 20240802
  Receipt Date: 20240802
  Transmission Date: 20241016
  Serious: Yes (Hospitalization)
  Sender: ASTRAZENECA
  Company Number: 2024A170158

PATIENT
  Sex: Female

DRUGS (1)
  1. FARXIGA [Suspect]
     Active Substance: DAPAGLIFLOZIN PROPANEDIOL
     Route: 048

REACTIONS (7)
  - Abdominal pain upper [Unknown]
  - Dyspnoea [Unknown]
  - Thirst [Unknown]
  - Urinary tract infection [Unknown]
  - Pruritus [Unknown]
  - Acne [Unknown]
  - Pollakiuria [Unknown]
